FAERS Safety Report 24257490 (Version 1)
Quarter: 2024Q3

REPORT INFORMATION
  Report Type: Spontaneous
  Country: SA (occurrence: SA)
  Receive Date: 20240828
  Receipt Date: 20240828
  Transmission Date: 20241016
  Serious: Yes (Other)
  Sender: REGENERON
  Company Number: SA-BAYER-2024A097862

PATIENT
  Age: 68 Year
  Sex: Male

DRUGS (1)
  1. EYLEA HD [Suspect]
     Active Substance: AFLIBERCEPT
     Indication: Product used for unknown indication
     Dosage: UNK, RIGHT EYE, SOLUTION FOR INJECTION, STRENGTH: 114.3MG/ML
     Route: 031
     Dates: start: 20240626, end: 20240626

REACTIONS (4)
  - Blindness [Unknown]
  - Uveitis [Recovered/Resolved]
  - Vitreous floaters [Unknown]
  - Vitreal cells [Unknown]

NARRATIVE: CASE EVENT DATE: 20240627
